FAERS Safety Report 22077188 (Version 1)
Quarter: 2023Q1

REPORT INFORMATION
  Report Type: Spontaneous
  Country: CN (occurrence: None)
  Receive Date: 20230309
  Receipt Date: 20230309
  Transmission Date: 20230418
  Serious: Yes (Hospitalization)
  Sender: FDA-Public Use
  Company Number: CN-ROCHE-3298556

PATIENT
  Age: 57 Year
  Sex: Female
  Weight: 66 kg

DRUGS (11)
  1. HERCEPTIN [Suspect]
     Active Substance: TRASTUZUMAB
     Indication: Breast cancer
     Route: 041
     Dates: start: 20230214
  2. HERCEPTIN [Suspect]
     Active Substance: TRASTUZUMAB
     Indication: Metastases to liver
  3. HERCEPTIN [Suspect]
     Active Substance: TRASTUZUMAB
     Indication: Metastases to lung
  4. PACLITAXEL [Suspect]
     Active Substance: PACLITAXEL
     Indication: Breast cancer
     Route: 041
     Dates: start: 20230214
  5. PACLITAXEL [Suspect]
     Active Substance: PACLITAXEL
     Indication: Metastases to liver
  6. PACLITAXEL [Suspect]
     Active Substance: PACLITAXEL
     Indication: Metastases to lung
  7. PYROTINIB MALEATE [Suspect]
     Active Substance: PYROTINIB MALEATE
     Indication: Breast cancer
     Route: 048
     Dates: start: 20230214
  8. PYROTINIB MALEATE [Suspect]
     Active Substance: PYROTINIB MALEATE
     Indication: Metastases to liver
  9. PYROTINIB MALEATE [Suspect]
     Active Substance: PYROTINIB MALEATE
     Indication: Metastases to lung
  10. SODIUM CHLORIDE [Concomitant]
     Active Substance: SODIUM CHLORIDE
     Route: 041
     Dates: start: 20230214
  11. SODIUM CHLORIDE [Concomitant]
     Active Substance: SODIUM CHLORIDE
     Route: 041
     Dates: start: 20230214

REACTIONS (2)
  - Myelosuppression [Recovering/Resolving]
  - Coagulation time prolonged [Recovering/Resolving]

NARRATIVE: CASE EVENT DATE: 20230220
